FAERS Safety Report 13276432 (Version 1)
Quarter: 2017Q1

REPORT INFORMATION
  Report Type: Spontaneous
  Country: US (occurrence: US)
  Receive Date: 20170225
  Receipt Date: 20170225
  Transmission Date: 20170428
  Serious: Yes (Hospitalization)
  Sender: FDA-Public Use
  Company Number: None

PATIENT
  Age: 71 Year
  Sex: Female

DRUGS (1)
  1. AUROTUSSIN PEAK COLD (DEXTROMETHORPHAN HYDROBROMIDE\GUAIFENESIN) [Suspect]
     Active Substance: DEXTROMETHORPHAN HYDROBROMIDE\GUAIFENESIN
     Dosage: 2 TEASPOONS ONCE AT THE END OF JANUARY, 2017
     Dates: start: 201701

REACTIONS (3)
  - Vomiting [None]
  - Loss of consciousness [None]
  - Presyncope [None]

NARRATIVE: CASE EVENT DATE: 20170127
